FAERS Safety Report 8789678 (Version 1)
Quarter: 2012Q4

REPORT INFORMATION
  Report Type: Spontaneous
  Country: US (occurrence: None)
  Receive Date: 20120911
  Receipt Date: 20120911
  Transmission Date: 20130627
  Serious: Yes (Hospitalization)
  Sender: FDA-Public Use
  Company Number: None

PATIENT
  Age: 58 Year
  Sex: Female
  Weight: 96 kg

DRUGS (5)
  1. WARFARIN [Suspect]
     Indication: COAGULOPATHY
     Dosage: DATE OF USE:  prior to admission.

ALT QODAY
     Route: 048
  2. MONTELUKAST [Concomitant]
  3. LORATADINE [Concomitant]
  4. LISINOPRIL [Concomitant]
  5. NIACIN ER [Concomitant]

REACTIONS (2)
  - Gastric ulcer haemorrhage [None]
  - Shock haemorrhagic [None]
